FAERS Safety Report 22100623 (Version 4)
Quarter: 2023Q2

REPORT INFORMATION
  Report Type: Report from Study
  Country: JP (occurrence: JP)
  Receive Date: 20230316
  Receipt Date: 20230503
  Transmission Date: 20230722
  Serious: Yes (Hospitalization)
  Sender: FDA-Public Use
  Company Number: JP-CHUGAI-2023007843

PATIENT
  Age: 72 Year
  Sex: Male
  Weight: 65.8 kg

DRUGS (8)
  1. ATEZOLIZUMAB [Suspect]
     Active Substance: ATEZOLIZUMAB
     Indication: Thymic carcinoma
     Route: 041
     Dates: start: 20230215
  2. CARBOPLATIN [Suspect]
     Active Substance: CARBOPLATIN
     Indication: Thymic carcinoma
     Route: 042
     Dates: start: 20230215
  3. PACLITAXEL [Suspect]
     Active Substance: PACLITAXEL
     Indication: Thymic carcinoma
     Route: 042
     Dates: start: 20230215
  4. CARBOPLATIN [Concomitant]
     Active Substance: CARBOPLATIN
     Indication: Thymic carcinoma
     Dosage: 656 MILLIGRAM, ONCE/3WEEKS
     Route: 042
     Dates: start: 20230215
  5. PACLITAXEL [Concomitant]
     Active Substance: PACLITAXEL
     Indication: Thymic carcinoma
     Dosage: 376 MILLIGRAM, ONCE/3WEEKS
     Route: 042
     Dates: start: 20230215
  6. CALONAL [Concomitant]
     Active Substance: ACETAMINOPHEN
     Indication: Tumour pain
     Dosage: UNK
     Route: 048
  7. VONOPRAZAN FUMARATE [Concomitant]
     Active Substance: VONOPRAZAN FUMARATE
     Indication: Gastritis prophylaxis
     Dosage: UNK
     Route: 048
  8. TRAMADOL [Concomitant]
     Active Substance: TRAMADOL
     Indication: Tumour pain
     Dosage: UNK, ORALLY DISINTEGRATING
     Route: 048

REACTIONS (2)
  - Adrenal insufficiency [Recovering/Resolving]
  - Ventricular arrhythmia [Recovering/Resolving]

NARRATIVE: CASE EVENT DATE: 20230225
